FAERS Safety Report 6827492-2 (Version None)
Quarter: 2010Q3

REPORT INFORMATION
  Report Type: 
  Country: None (occurrence: None)
  Receive Date: 20100709
  Receipt Date: 20070117
  Transmission Date: 20110219
  Serious: Yes (Other)
  Sender: FDA-Public Use
  Company Number: US-PFIZER INC-2007004105

PATIENT
  Sex: Female
  Weight: 58.1 kg

DRUGS (2)
  1. CHANTIX [Suspect]
     Indication: SMOKING CESSATION THERAPY
     Dates: start: 20070103
  2. WELLBUTRIN XL [Concomitant]

REACTIONS (3)
  - ACNE CYSTIC [None]
  - PSYCHOTIC DISORDER [None]
  - SWELLING FACE [None]
